FAERS Safety Report 21111572 (Version 1)
Quarter: 2022Q3

REPORT INFORMATION
  Report Type: Spontaneous
  Country: US (occurrence: None)
  Receive Date: 20220721
  Receipt Date: 20220721
  Transmission Date: 20221027
  Serious: Yes (Hospitalization, Disabling)
  Sender: FDA-Public Use
  Company Number: None

PATIENT
  Age: 69 Year
  Sex: Male
  Weight: 90.72 kg

DRUGS (1)
  1. WARFARIN SODIUM [Suspect]
     Active Substance: WARFARIN SODIUM
     Dosage: FREQUENCY : DAILY;  IN THE EVENING?
     Route: 048
     Dates: end: 20220207

REACTIONS (2)
  - Haemorrhage intracranial [None]
  - Cerebrovascular accident [None]

NARRATIVE: CASE EVENT DATE: 20220207
